FAERS Safety Report 24107661 (Version 1)
Quarter: 2024Q3

REPORT INFORMATION
  Report Type: Report from Study
  Country: US (occurrence: None)
  Receive Date: 20240718
  Receipt Date: 20240718
  Transmission Date: 20241017
  Serious: Yes (Other)
  Sender: ASTRAZENECA
  Company Number: 2020SE25218

PATIENT
  Age: 76 Year
  Sex: Female

DRUGS (12)
  1. TAGRISSO [Suspect]
     Active Substance: OSIMERTINIB
     Indication: Lung carcinoma cell type unspecified stage 0
     Route: 048
     Dates: start: 20191207
  2. DEXAMETHASONE [Concomitant]
     Active Substance: DEXAMETHASONE
  3. OXYQUINOLINE SULFATE [Concomitant]
     Active Substance: OXYQUINOLINE SULFATE
  4. JANUVIA [Concomitant]
     Active Substance: SITAGLIPTIN PHOSPHATE
  5. LOSARTAN POTASSIUM [Concomitant]
     Active Substance: LOSARTAN POTASSIUM
  6. MEMANTINE [Concomitant]
     Active Substance: MEMANTINE
  7. NISOLDIPINE [Concomitant]
     Active Substance: NISOLDIPINE
  8. ONEVITE [Concomitant]
  9. OYSCO 500+D [Concomitant]
  10. MINERALS\VITAMINS [Concomitant]
     Active Substance: MINERALS\VITAMINS
  11. VITAMIN C ADULT GUMMIES [Concomitant]
  12. XGEVA [Concomitant]
     Active Substance: DENOSUMAB

REACTIONS (2)
  - Pancytopenia [Unknown]
  - Full blood count abnormal [Unknown]
